FAERS Safety Report 8961757 (Version 1)
Quarter: 2012Q4

REPORT INFORMATION
  Report Type: 
  Country: NO (occurrence: NO)
  Receive Date: 20121213
  Receipt Date: 20121213
  Transmission Date: 20130627
  Serious: Yes (Other)
  Sender: FDA-Public Use
  Company Number: NO-SANOFI-AVENTIS-2012SA089290

PATIENT
  Sex: Male

DRUGS (4)
  1. STILNOCT [Suspect]
     Indication: INSOMNIA
     Route: 048
  2. VENLAFAXINE [Concomitant]
  3. VENTOLINE [Concomitant]
     Dosage: frequency: 6 times a day
  4. SIMVASTATIN [Concomitant]

REACTIONS (5)
  - Road traffic accident [Unknown]
  - Anterograde amnesia [Unknown]
  - Nightmare [Unknown]
  - Somnambulism [Unknown]
  - Abnormal behaviour [Unknown]
